FAERS Safety Report 6673587-6 (Version None)
Quarter: 2010Q2

REPORT INFORMATION
  Report Type: 
  Country: None (occurrence: None)
  Receive Date: 20100408
  Receipt Date: 20100329
  Transmission Date: 20101027
  Serious: Yes (Hospitalization)
  Sender: FDA-Public Use
  Company Number: IT-PFIZER INC-2010019308

PATIENT
  Age: 69 Year
  Sex: Female

DRUGS (1)
  1. CELEBREX [Suspect]
     Indication: EAR PAIN
     Dosage: 200 MG DAILY
     Route: 048
     Dates: start: 20091029, end: 20091029

REACTIONS (2)
  - CONFUSIONAL STATE [None]
  - MALAISE [None]
